FAERS Safety Report 6717319-1 (Version None)
Quarter: 2010Q2

REPORT INFORMATION
  Report Type: 
  Country: None (occurrence: None)
  Receive Date: 20100510
  Receipt Date: 20100503
  Transmission Date: 20101027
  Serious: Yes (Hospitalization)
  Sender: FDA-Public Use
  Company Number: US-ELI_LILLY_AND_COMPANY-US201005000617

PATIENT
  Age: 80 Year
  Sex: Male

DRUGS (13)
  1. HUMALOG MIX 75/25 [Suspect]
     Indication: TYPE 2 DIABETES MELLITUS
     Dosage: 20 U, 2/D
  2. HUMALOG MIX 75/25 [Suspect]
     Dosage: 20 U, 2/D
  3. HUMALOG MIX 75/25 [Suspect]
     Dosage: 20 U, 2/D
  4. HUMALOG MIX 75/25 [Suspect]
     Dosage: 20 U, 2/D
  5. HUMALOG MIX 75/25 [Suspect]
     Dosage: 25 U, OTHER
     Dates: start: 20100503, end: 20100503
  6. HUMALOG MIX 75/25 [Suspect]
     Dosage: 2 U, OTHER
     Dates: start: 20100505, end: 20100505
  7. HUMALOG [Suspect]
     Indication: TYPE 2 DIABETES MELLITUS
     Dosage: UNK, AS NEEDED
     Dates: start: 19950101
  8. HUMALOG [Suspect]
     Dosage: 20 U, EACH EVENING
     Dates: start: 19950101
  9. HUMALOG [Suspect]
     Dosage: 17 U, EACH EVENING
     Dates: start: 19950101
  10. HUMALOG [Suspect]
     Dosage: 20 U, EACH EVENING
     Dates: start: 19950101
  11. HUMALOG [Suspect]
     Dosage: 17 U, EACH EVENING
     Dates: start: 19950101
  12. HUMALOG [Suspect]
     Dosage: UNK, AS NEEDED
     Dates: start: 19950101
  13. TRILEPTAL [Concomitant]
     Indication: NEUROPATHY PERIPHERAL

REACTIONS (9)
  - BLOOD GLUCOSE DECREASED [None]
  - BLOOD GLUCOSE INCREASED [None]
  - DIABETIC NEUROPATHY [None]
  - DRUG DOSE OMISSION [None]
  - DRUG INEFFECTIVE [None]
  - HYPOAESTHESIA [None]
  - PARKINSON'S DISEASE [None]
  - PRODUCT QUALITY ISSUE [None]
  - TRANSIENT ISCHAEMIC ATTACK [None]
